FAERS Safety Report 5033485-0 (Version None)
Quarter: 2006Q2

REPORT INFORMATION
  Report Type: 
  Country: None (occurrence: None)
  Receive Date: 20060518
  Receipt Date: 20060131
  Transmission Date: 20061013
  Serious: Yes (Other)
  Sender: FDA-Public Use
  Company Number: 2006015917

PATIENT
  Sex: Female

DRUGS (2)
  1. DEPO-PROVERA [Suspect]
     Indication: CONTRACEPTION
     Dosage: SEE IMAGE
     Dates: start: 19960501, end: 19960501
  2. DEPO-PROVERA [Suspect]
     Indication: CONTRACEPTION
     Dosage: SEE IMAGE
     Dates: start: 20050801, end: 20050801

REACTIONS (7)
  - BACK PAIN [None]
  - BLOOD CALCIUM DECREASED [None]
  - OSTEOPENIA [None]
  - OSTEOPOROSIS [None]
  - SCOLIOSIS [None]
  - SHOULDER PAIN [None]
  - SPINAL OSTEOARTHRITIS [None]
